FAERS Safety Report 8577992-2 (Version None)
Quarter: 2012Q3

REPORT INFORMATION
  Report Type: 
  Country: None (occurrence: None)
  Receive Date: 20120725
  Receipt Date: 20120709
  Transmission Date: 20120928
  Serious: Yes (Hospitalization, Other)
  Sender: FDA-Public Use
  Company Number: 2012MA008469

PATIENT
  Age: 33 Year
  Sex: Male

DRUGS (4)
  1. MORPHINE SULFATE INJ [Suspect]
     Indication: PAIN
     Dosage: 2 MG; X1; IV
     Route: 042
  2. CEFAZOLIN [Concomitant]
  3. METHIMAZOLE [Concomitant]
  4. AMOXICILLIN AND CLAVULANATE POTASSIUM [Concomitant]

REACTIONS (1)
  - KOUNIS SYNDROME [None]
